FAERS Safety Report 8592966 (Version 2)
Quarter: 2013Q1

REPORT INFORMATION
  Report Type: Report from Study
  Country: US (occurrence: US)
  Receive Date: 20120604
  Receipt Date: 20130225
  Transmission Date: 20140127
  Serious: Yes (Other)
  Sender: FDA-Public Use
  Company Number: 2007BI020432

PATIENT
  Age: 28 Year
  Sex: Female

DRUGS (10)
  1. TYSABRI [Suspect]
     Indication: MULTIPLE SCLEROSIS
     Route: 042
     Dates: end: 20070902
  2. HYDROCHLOROTHIAZIDE [Concomitant]
  3. PROZAC [Concomitant]
  4. FLEXERIL [Concomitant]
  5. AMANTADINE [Concomitant]
  6. COZAAR [Concomitant]
  7. MULTIVITAMIN [Concomitant]
  8. POTASSIUM [Concomitant]
  9. CALCIUM WITH VITAMIN D [Concomitant]
  10. TOPROL [Concomitant]

REACTIONS (1)
  - Abortion spontaneous [Recovered/Resolved]
